FAERS Safety Report 18546282 (Version 2)
Quarter: 2021Q1

REPORT INFORMATION
  Report Type: Spontaneous
  Country: JP (occurrence: JP)
  Receive Date: 20201125
  Receipt Date: 20210302
  Transmission Date: 20210419
  Serious: Yes (Hospitalization)
  Sender: FDA-Public Use
  Company Number: JP-DSJP-DSJ-2020-133732

PATIENT
  Age: 63 Year
  Sex: Female
  Weight: 62 kg

DRUGS (3)
  1. ALOXI [Concomitant]
     Active Substance: PALONOSETRON HYDROCHLORIDE
     Indication: ADVERSE REACTION
     Dosage: 0.75 MG
     Route: 041
     Dates: start: 20200721, end: 20201020
  2. DEXART [Concomitant]
     Active Substance: DEXAMETHASONE SODIUM PHOSPHATE
     Indication: ADVERSE REACTION
     Dosage: 6.6 MG
     Route: 041
     Dates: start: 20200721, end: 20201020
  3. ENHERTU [Suspect]
     Active Substance: FAM-TRASTUZUMAB DERUXTECAN-NXKI
     Indication: HER2 POSITIVE BREAST CANCER
     Dosage: 372 MG, ONCE EVERY 3 WK
     Route: 041
     Dates: start: 20200721, end: 20201020

REACTIONS (1)
  - COVID-19 [Recovering/Resolving]

NARRATIVE: CASE EVENT DATE: 20201005
